FAERS Safety Report 23630945 (Version 2)
Quarter: 2024Q1

REPORT INFORMATION
  Report Type: Spontaneous
  Country: IR (occurrence: IR)
  Receive Date: 20240314
  Receipt Date: 20240326
  Transmission Date: 20240410
  Serious: Yes (Hospitalization, Other)
  Sender: FDA-Public Use
  Company Number: IR-ALKEM LABORATORIES LIMITED-IR-ALKEM-2024-04403

PATIENT
  Age: 34 Year
  Sex: Female

DRUGS (5)
  1. AZATHIOPRINE [Interacting]
     Active Substance: AZATHIOPRINE
     Indication: Sjogren^s syndrome
     Dosage: 50 MILLIGRAM (60 TABLETS)
     Route: 065
  2. HYDROXYCHLOROQUINE [Interacting]
     Active Substance: HYDROXYCHLOROQUINE
     Indication: Sjogren^s syndrome
     Dosage: 200 MILLIGRAM (40 TABLETS)
     Route: 065
  3. FLUOXETINE [Concomitant]
     Active Substance: FLUOXETINE HYDROCHLORIDE
     Indication: Product used for unknown indication
     Dosage: UNK
     Route: 065
  4. NAPROXEN [Concomitant]
     Active Substance: NAPROXEN
     Indication: Product used for unknown indication
     Dosage: UNK
     Route: 065
  5. PREDNISOLONE [Concomitant]
     Active Substance: PREDNISOLONE
     Indication: Product used for unknown indication
     Dosage: UNK
     Route: 065

REACTIONS (11)
  - Electrocardiogram QT prolonged [Recovered/Resolved]
  - Hypokalaemia [Recovered/Resolved]
  - Drug interaction [Unknown]
  - Loss of consciousness [Recovered/Resolved]
  - Intentional overdose [Unknown]
  - Hypotension [Recovered/Resolved]
  - Hypocalcaemia [Recovered/Resolved]
  - Hypoglycaemia [Recovered/Resolved]
  - Respiratory alkalosis [Recovered/Resolved]
  - Metabolic acidosis [Recovered/Resolved]
  - Mydriasis [Recovered/Resolved]
